FAERS Safety Report 16959563 (Version 1)
Quarter: 2019Q4

REPORT INFORMATION
  Report Type: Spontaneous
  Country: GB (occurrence: GB)
  Receive Date: 20191025
  Receipt Date: 20191025
  Transmission Date: 20200122
  Serious: Yes (Other)
  Sender: FDA-Public Use
  Company Number: GB-TEVA-2019-GB-1127066

PATIENT
  Age: 58 Year
  Sex: Male
  Weight: 76 kg

DRUGS (14)
  1. HYDROMOL CREAM [Concomitant]
     Dosage: USE AS DIRECTED
     Dates: start: 20190604
  2. FERROUS SULFATE. [Concomitant]
     Active Substance: FERROUS SULFATE
     Dosage: 3 DOSAGE FORMS 1 DAYS
     Dates: start: 20190710
  3. MONTELUKAST [Concomitant]
     Active Substance: MONTELUKAST SODIUM
     Dosage: AT NIGHT 1 DOSAGE FORMS 1 DAYS
     Dates: start: 20190211
  4. CO-AMOXICLAV [Suspect]
     Active Substance: AMOXICILLIN\CLAVULANATE POTASSIUM
     Dosage: 500MG/125MG
     Route: 065
     Dates: start: 20190823
  5. SERETIDE [Concomitant]
     Active Substance: FLUTICASONE PROPIONATE\SALMETEROL XINAFOATE
     Dosage: 2 DOSAGE FORMS 1 DAYS
     Route: 055
     Dates: start: 20190211
  6. CITALOPRAM [Concomitant]
     Active Substance: CITALOPRAM HYDROBROMIDE
     Dosage: 1 DOSAGE FORMS 1 DAYS
     Dates: start: 20190211
  7. VENTOLIN [Concomitant]
     Active Substance: ALBUTEROL SULFATE
     Dosage: 2 DOSAGE FORMS
     Route: 055
     Dates: start: 20190211
  8. FERROUS FUMARATE [Concomitant]
     Active Substance: FERROUS FUMARATE
     Dosage: 10ML ONCE OR TWICE A DAY 10 ML
     Dates: start: 20190717, end: 20190806
  9. SPIRIVA [Concomitant]
     Active Substance: TIOTROPIUM BROMIDE MONOHYDRATE
     Dosage: 1 DOSAGE FORMS 1 DAYS
     Route: 055
     Dates: start: 20190211
  10. CETRABEN EMOLLIENT CREAM [Concomitant]
     Dosage: 4 DOSAGE FORMS 1 DAYS
     Dates: start: 20190211
  11. NYSTAN [Concomitant]
     Active Substance: NYSTATIN
     Dosage: 4 ML 1 DAYS
     Dates: start: 20190717, end: 20190724
  12. CETIRIZINE [Concomitant]
     Active Substance: CETIRIZINE HYDROCHLORIDE
     Dosage: 1 DOSAGE FORMS 1 DAYS
     Dates: start: 20190710
  13. FLUTICASONE FUROATE [Concomitant]
     Active Substance: FLUTICASONE FUROATE
     Dosage: TWO SPRAYS IN EACH NOSTRIL DAILY, OR AS DIRECTED  4 DOSAGE FORMS
     Dates: start: 20190211
  14. CICLESONIDE [Concomitant]
     Active Substance: CICLESONIDE
     Dosage: 4 DOSAGE FORMS 1 DAYS
     Dates: start: 20190211

REACTIONS (1)
  - Drug reaction with eosinophilia and systemic symptoms [Recovering/Resolving]

NARRATIVE: CASE EVENT DATE: 20190823
